FAERS Safety Report 10537198 (Version 1)
Quarter: 2014Q4

REPORT INFORMATION
  Report Type: Spontaneous
  Country: CH (occurrence: CH)
  Receive Date: 20141022
  Receipt Date: 20141022
  Transmission Date: 20150529
  Serious: Yes (Hospitalization)
  Sender: FDA-Public Use
  Company Number: PHHY2014CH137181

PATIENT
  Age: 52 Year
  Sex: Male

DRUGS (15)
  1. METFORMIN [Suspect]
     Active Substance: METFORMIN HYDROCHLORIDE
     Dosage: 1000 MG, BID
     Route: 048
     Dates: end: 20140921
  2. HALDOL [Suspect]
     Active Substance: HALOPERIDOL
     Dosage: 10 MG, TID
     Route: 048
  3. SELIPRAN [Suspect]
     Active Substance: PRAVASTATIN SODIUM
     Dosage: 40 MG, QD
     Route: 048
  4. TEMESTA [Suspect]
     Active Substance: LORAZEPAM
     Dosage: 2.5 MG, UNK
     Route: 048
  5. PANTOZOL [Concomitant]
     Active Substance: PANTOPRAZOLE SODIUM
     Dosage: 20 MG, QD
     Route: 048
  6. FLURAZEPAM [Suspect]
     Active Substance: FLURAZEPAM\FLURAZEPAM HYDROCHLORIDE
     Dosage: 30 MG, QD
     Route: 048
  7. ENTUMIN [Suspect]
     Active Substance: CLOTHIAPINE
     Dosage: 10 MG, UNK
     Route: 048
  8. ZYLORIC [Concomitant]
     Active Substance: ALLOPURINOL
     Dosage: 300 MG, QD
     Route: 048
  9. CLOPIN ECO [Suspect]
     Active Substance: CLOZAPINE
     Dosage: 400 MG, QD
     Route: 048
  10. DIAMICRON MR [Suspect]
     Active Substance: GLICLAZIDE
     Dosage: 60 MG, QD
     Route: 048
     Dates: end: 20140921
  11. PRADIF T [Concomitant]
     Active Substance: TAMSULOSIN HYDROCHLORIDE
     Dosage: 1 DF, QD
     Route: 048
  12. TOPAMAX [Suspect]
     Active Substance: TOPIRAMATE
     Dosage: 50 MG, BID
     Route: 048
  13. DISTRANEURIN [Suspect]
     Active Substance: CLOMETHIAZOLE
     Dosage: 1 DF, QD
     Route: 048
  14. DIPIPERON [Suspect]
     Active Substance: PIPAMPERONE
     Dosage: 40 MG, QD
     Route: 048
  15. TRANXILIUM [Suspect]
     Active Substance: CLORAZEPATE DIPOTASSIUM
     Dosage: 50 MG, UNK
     Route: 048

REACTIONS (2)
  - Altered state of consciousness [Unknown]
  - Hypoglycaemia [Recovered/Resolved]

NARRATIVE: CASE EVENT DATE: 20140921
